FAERS Safety Report 16296178 (Version 3)
Quarter: 2019Q3

REPORT INFORMATION
  Report Type: Spontaneous
  Country: US (occurrence: US)
  Receive Date: 20190510
  Receipt Date: 20190920
  Transmission Date: 20191004
  Serious: No
  Sender: FDA-Public Use
  Company Number: US-PFIZER INC-2019195205

PATIENT
  Age: 79 Year
  Sex: Female

DRUGS (1)
  1. LYRICA [Suspect]
     Active Substance: PREGABALIN
     Indication: AUTONOMIC NEUROPATHY
     Dosage: 150 MG, ONCE A DAY, [2 CAPSULES AT HS [AT NIGHT] / 2 CAPSULES AT HS (TAKE AT BEDTIME)]

REACTIONS (2)
  - Product use in unapproved indication [Unknown]
  - Off label use [Unknown]
